FAERS Safety Report 15683041 (Version 1)
Quarter: 2018Q4

REPORT INFORMATION
  Report Type: Report from Study
  Country: IT (occurrence: IT)
  Receive Date: 20181204
  Receipt Date: 20181204
  Transmission Date: 20190205
  Serious: Yes (Other)
  Sender: FDA-Public Use
  Company Number: IT-TEVA-2018-IT-981568

PATIENT
  Age: 59 Year
  Sex: Female

DRUGS (13)
  1. TACHIDOL [Concomitant]
     Active Substance: ACETAMINOPHEN\CODEINE PHOSPHATE
  2. ORAMORPH [Concomitant]
     Active Substance: MORPHINE SULFATE
  3. EPIRUBICINA AHCL [Suspect]
     Active Substance: EPIRUBICIN
     Indication: BREAST CANCER
     Route: 065
  4. DECADRON 2 MG/ML GOCCE ORALI, SOLUZIONE [Concomitant]
  5. ZARZIO 30 MU/0.5 ML SOLUTION FOR INJECTION OR INFUSION IN PRE-FILLED S [Concomitant]
  6. DELTACORTENE [Concomitant]
     Active Substance: PREDNISONE
  7. TWICE [Concomitant]
  8. CLEXANE [Concomitant]
     Active Substance: ENOXAPARIN SODIUM
  9. PLASIL [Concomitant]
     Active Substance: METOCLOPRAMIDE HYDROCHLORIDE
  10. DOCETAXEL. [Suspect]
     Active Substance: DOCETAXEL
     Indication: BREAST CANCER
     Route: 042
  11. MYCOSTATIN [Concomitant]
     Active Substance: NYSTATIN
  12. ONDANSETRON HYDROCHLORIDE. [Concomitant]
     Active Substance: ONDANSETRON HYDROCHLORIDE
  13. PANTORC [Concomitant]
     Active Substance: PANTOPRAZOLE SODIUM

REACTIONS (9)
  - Asthenia [Unknown]
  - Dry mouth [Unknown]
  - Alopecia [Unknown]
  - Neutropenia [Unknown]
  - Nausea [Unknown]
  - Oedema peripheral [Unknown]
  - Vomiting [Unknown]
  - Aphthous ulcer [Unknown]
  - Ageusia [Unknown]

NARRATIVE: CASE EVENT DATE: 20180913
